FAERS Safety Report 4690568-2 (Version None)
Quarter: 2005Q2

REPORT INFORMATION
  Report Type: 
  Country: None (occurrence: None)
  Receive Date: 20050614
  Receipt Date: 20050614
  Transmission Date: 20051028
  Serious: Yes (Life-Threatening)
  Sender: FDA-Public Use
  Company Number: None

PATIENT
  Sex: Female

DRUGS (1)
  1. IMURAN [Suspect]
     Dosage: 125MG QD  ORAL
     Route: 048

REACTIONS (1)
  - NEUTROPENIA [None]
